FAERS Safety Report 9476072 (Version 1)
Quarter: 2013Q3

REPORT INFORMATION
  Report Type: Spontaneous
  Country: IT (occurrence: None)
  Receive Date: 20130821
  Receipt Date: 20130821
  Transmission Date: 20140515
  Serious: Yes (Hospitalization)
  Sender: FDA-Public Use
  Company Number: SYM-2013-08983

PATIENT
  Age: 15 Month
  Sex: Female

DRUGS (3)
  1. ACYCLOVIR (ACICLOVIR) (ACICLOVIR) [Suspect]
     Indication: ILL-DEFINED DISORDER
  2. PARACETAMOL (PARACETAMOL) (PARACETAMOL) [Suspect]
     Indication: PYREXIA
  3. CEFTIBUTEN [Suspect]
     Indication: ILL-DEFINED DISORDER

REACTIONS (1)
  - Stevens-Johnson syndrome [None]
